FAERS Safety Report 9920852 (Version 1)
Quarter: 2014Q1

REPORT INFORMATION
  Report Type: Spontaneous
  Country: US (occurrence: US)
  Receive Date: 20140225
  Receipt Date: 20140225
  Transmission Date: 20141002
  Serious: Yes (Other)
  Sender: FDA-Public Use
  Company Number: US-AMGEN-USASP2014012442

PATIENT
  Age: 61 Year
  Sex: Female
  Weight: 55.78 kg

DRUGS (1)
  1. ENBREL [Suspect]
     Indication: PRODUCT USED FOR UNKNOWN INDICATION
     Dosage: 50 MG, QWK
     Route: 058
     Dates: start: 20070218

REACTIONS (3)
  - Pulmonary mass [Not Recovered/Not Resolved]
  - Bladder neoplasm [Recovered/Resolved]
  - Secretion discharge [Not Recovered/Not Resolved]
